FAERS Safety Report 11044094 (Version 1)
Quarter: 2015Q2

REPORT INFORMATION
  Report Type: Spontaneous
  Country: US (occurrence: None)
  Receive Date: 20150415
  Receipt Date: 20150415
  Transmission Date: 20150821
  Serious: Yes (Other)
  Sender: FDA-Public Use
  Company Number: HA15-101-AE

PATIENT
  Age: 68 Year
  Sex: Female

DRUGS (13)
  1. PENICILLIN [Concomitant]
     Active Substance: PENICILLIN
  2. CALTRATE (LEKOVIT CA, COLECALCIFEROL, CALCIUM CARBONATE) [Concomitant]
  3. HUMIRA [Concomitant]
     Active Substance: ADALIMUMAB
  4. SYNTHROID [Concomitant]
     Active Substance: LEVOTHYROXINE SODIUM
  5. WARFARIN [Concomitant]
     Active Substance: WARFARIN
  6. PREDNISONE. [Concomitant]
     Active Substance: PREDNISONE
  7. DIFLUCAN [Concomitant]
     Active Substance: FLUCONAZOLE
  8. HYDROCODONE [Suspect]
     Active Substance: HYDROCODONE
     Indication: ARTHRALGIA
     Route: 048
  9. VITAMIN D2 [Concomitant]
     Active Substance: ERGOCALCIFEROL
  10. MACRODANTIN [Concomitant]
     Active Substance: NITROFURANTOIN
  11. FLUCONASE (FLUCONAZOLE) [Concomitant]
  12. VITAMIN B12 (CYNOCOBALAMIN) [Concomitant]
  13. BIOTIN [Concomitant]
     Active Substance: BIOTIN

REACTIONS (7)
  - Constipation [None]
  - Fall [None]
  - Rash papular [None]
  - Arthralgia [None]
  - Rash macular [None]
  - Drug ineffective [None]
  - Patella fracture [None]

NARRATIVE: CASE EVENT DATE: 201411
